FAERS Safety Report 5910808-9 (Version None)
Quarter: 2008Q4

REPORT INFORMATION
  Report Type: 
  Country: None (occurrence: None)
  Receive Date: 20081007
  Receipt Date: 20080711
  Transmission Date: 20090506
  Serious: No
  Sender: FDA-Public Use
  Company Number: US-ASTRAZENECA-2008UW10155

PATIENT
  Age: 54 Year
  Sex: Female
  Weight: 61.8 kg

DRUGS (3)
  1. ARIMIDEX [Suspect]
     Indication: BREAST CANCER
     Route: 048
     Dates: start: 20080201
  2. CLODRONATE [Concomitant]
     Indication: METASTASES TO BONE
     Route: 048
     Dates: start: 20080201
  3. ALPRAZOLAM [Concomitant]
     Indication: ANXIETY
     Route: 048

REACTIONS (1)
  - TINNITUS [None]
